FAERS Safety Report 13499959 (Version 2)
Quarter: 2017Q2

REPORT INFORMATION
  Report Type: Spontaneous
  Country: US (occurrence: US)
  Receive Date: 20170501
  Receipt Date: 20170609
  Transmission Date: 20170830
  Serious: Yes (Death, Other)
  Sender: FDA-Public Use
  Company Number: US-SA-2017SA078113

PATIENT
  Age: 54 Year
  Sex: Male
  Weight: 76 kg

DRUGS (5)
  1. LEMTRADA [Suspect]
     Active Substance: ALEMTUZUMAB
     Indication: MULTIPLE SCLEROSIS
     Route: 041
     Dates: start: 201609, end: 20160904
  2. ACYCLOVIR. [Concomitant]
     Active Substance: ACYCLOVIR
     Indication: PROPHYLAXIS
     Route: 065
     Dates: start: 201508, end: 20170426
  3. VITAMIN D [Concomitant]
     Active Substance: CHOLECALCIFEROL
     Indication: MULTIPLE SCLEROSIS
     Dosage: DOSE:4000 UNIT(S)
     Route: 065
     Dates: end: 20170426
  4. BUPROPION. [Concomitant]
     Active Substance: BUPROPION
     Indication: DEPRESSION
     Route: 065
     Dates: end: 20170426
  5. LEMTRADA [Suspect]
     Active Substance: ALEMTUZUMAB
     Indication: MULTIPLE SCLEROSIS
     Route: 041
     Dates: start: 20150831

REACTIONS (6)
  - Myocardial infarction [Unknown]
  - Disease complication [Fatal]
  - Choking sensation [Unknown]
  - Arrhythmia [Unknown]
  - Cough [Unknown]
  - Cardiac arrest [Fatal]

NARRATIVE: CASE EVENT DATE: 2017
